FAERS Safety Report 12404879 (Version 1)
Quarter: 2016Q2

REPORT INFORMATION
  Report Type: Spontaneous
  Country: US (occurrence: US)
  Receive Date: 20160525
  Receipt Date: 20160525
  Transmission Date: 20160815
  Serious: Yes (Death, Other)
  Sender: FDA-Public Use
  Company Number: US-MYLANLABS-2016M1021423

PATIENT

DRUGS (3)
  1. LOPERAMIDE [Suspect]
     Active Substance: LOPERAMIDE
     Indication: OFF LABEL USE
  2. LOPERAMIDE [Suspect]
     Active Substance: LOPERAMIDE
     Indication: DRUG WITHDRAWAL SYNDROME
     Dosage: UNK
     Route: 065
  3. BUPRENORPHINE. [Suspect]
     Active Substance: BUPRENORPHINE
     Indication: SUBSTANCE ABUSE

REACTIONS (10)
  - Drug abuse [Fatal]
  - Pulmonary oedema [Fatal]
  - Overdose [Fatal]
  - Cardiomegaly [Fatal]
  - Brain oedema [Fatal]
  - Seizure [Unknown]
  - Urinary retention [Unknown]
  - Venous thrombosis limb [Unknown]
  - Toxicity to various agents [Fatal]
  - Cardio-respiratory arrest [Fatal]
